FAERS Safety Report 6932451-5 (Version None)
Quarter: 2010Q3

REPORT INFORMATION
  Report Type: 
  Country: None (occurrence: None)
  Receive Date: 20100819
  Receipt Date: 20100707
  Transmission Date: 20110219
  Serious: Yes (Other)
  Sender: FDA-Public Use
  Company Number: US-BAXTER-2010BH003508

PATIENT
  Age: 61 Year
  Sex: Male
  Weight: 104 kg

DRUGS (13)
  1. HEPARIN SODIUM INJECTION [Suspect]
     Indication: ANTICOAGULANT THERAPY
     Route: 042
     Dates: start: 20071001, end: 20071015
  2. HEPARIN SODIUM INJECTION [Suspect]
     Indication: AORTIC BYPASS
     Route: 042
     Dates: start: 20071001, end: 20071015
  3. HEPARIN SODIUM INJECTION [Suspect]
     Route: 041
     Dates: start: 20071001, end: 20071001
  4. HEPARIN SODIUM INJECTION [Suspect]
     Route: 041
     Dates: start: 20071001, end: 20071001
  5. HEPARIN SODIUM INJECTION [Suspect]
     Route: 040
     Dates: start: 20071006, end: 20071006
  6. HEPARIN SODIUM INJECTION [Suspect]
     Route: 040
     Dates: start: 20071006, end: 20071006
  7. HEPARIN SODIUM INJECTION [Suspect]
     Route: 041
     Dates: start: 20071008
  8. HEPARIN SODIUM INJECTION [Suspect]
     Route: 041
     Dates: start: 20071008
  9. HEPARIN SODIUM INJECTION [Suspect]
     Route: 042
     Dates: start: 20071012
  10. HEPARIN SODIUM INJECTION [Suspect]
     Route: 042
     Dates: start: 20071012
  11. WARFARIN [Concomitant]
     Indication: PRODUCT USED FOR UNKNOWN INDICATION
     Route: 065
  12. FLOSEAL MATRIX HEMOSTATIC SEALANT (DRUG) [Concomitant]
     Indication: PRODUCT USED FOR UNKNOWN INDICATION
     Route: 065
  13. THROMBIN LOCAL SOLUTION [Concomitant]
     Indication: PRODUCT USED FOR UNKNOWN INDICATION
     Route: 065

REACTIONS (5)
  - CHILLS [None]
  - CYANOSIS [None]
  - HYPERHIDROSIS [None]
  - NAUSEA [None]
  - TREMOR [None]
